FAERS Safety Report 10758590 (Version 1)
Quarter: 2015Q1

REPORT INFORMATION
  Report Type: Spontaneous
  Country: US (occurrence: None)
  Receive Date: 20150123
  Receipt Date: 20150123
  Transmission Date: 20150721
  Serious: No
  Sender: FDA-Public Use
  Company Number: 2014TUS008798

PATIENT
  Age: 83 Year
  Sex: Female

DRUGS (3)
  1. ENTYVIO [Suspect]
     Active Substance: VEDOLIZUMAB
     Indication: COLITIS ULCERATIVE
     Dosage: 300 MG, UNK, INTRAVENOUS
     Route: 042
  2. UCERIS (BUDESONIDE) [Concomitant]
  3. APRISO (MESALAZINE) [Concomitant]

REACTIONS (1)
  - Arthralgia [None]
